FAERS Safety Report 4510666-3 (Version None)
Quarter: 2004Q4

REPORT INFORMATION
  Report Type: 
  Country: None (occurrence: None)
  Receive Date: 20041025
  Receipt Date: 20031002
  Transmission Date: 20050328
  Serious: Yes (Hospitalization, Other)
  Sender: FDA-Public Use
  Company Number: NSADSS2002039308

PATIENT
  Age: 78 Year
  Sex: Female
  Weight: 66.2252 kg

DRUGS (9)
  1. REMICADE [Suspect]
     Indication: RHEUMATOID ARTHRITIS
     Dosage: 1 IN 1 AS NECESSARY, INTRAVENOUS DRIP
     Route: 041
     Dates: start: 20000101
  2. ZANTAC [Concomitant]
  3. LORAZEPAM [Concomitant]
  4. FOSAMAX [Concomitant]
  5. PAXIL [Concomitant]
  6. METHOTREXATE [Concomitant]
  7. CELEBREX [Concomitant]
  8. RIDAURA [Concomitant]
  9. ASPIRIN [Concomitant]

REACTIONS (2)
  - PLEURAL EFFUSION [None]
  - SYSTEMIC LUPUS ERYTHEMATOSUS [None]
